FAERS Safety Report 7338592-5 (Version None)
Quarter: 2011Q1

REPORT INFORMATION
  Report Type: 
  Country: None (occurrence: None)
  Receive Date: 20110303
  Receipt Date: 20110303
  Transmission Date: 20110831
  Serious: No
  Sender: FDA-Public Use
  Company Number: None

PATIENT
  Age: 67 Year
  Sex: Female
  Weight: 69.4003 kg

DRUGS (1)
  1. SYNTHROID [Suspect]
     Indication: THYROID NEOPLASM
     Dosage: SEE IMAGE
     Route: 048
     Dates: start: 20110108, end: 20110120

REACTIONS (2)
  - DIARRHOEA [None]
  - FAECAL INCONTINENCE [None]
